FAERS Safety Report 25180044 (Version 4)
Quarter: 2025Q2

REPORT INFORMATION
  Report Type: Spontaneous
  Country: US (occurrence: US)
  Receive Date: 20250409
  Receipt Date: 20250616
  Transmission Date: 20250717
  Serious: No
  Sender: PFIZER
  Company Number: US-PFIZER INC-PV202500041100

PATIENT
  Sex: Female

DRUGS (1)
  1. RUXIENCE [Suspect]
     Active Substance: RITUXIMAB-PVVR
     Indication: B-cell lymphoma

REACTIONS (8)
  - Malaise [Unknown]
  - Abdominal pain [Unknown]
  - Chest discomfort [Unknown]
  - Vomiting [Unknown]
  - Arthralgia [Unknown]
  - Pain [Unknown]
  - Throat irritation [Unknown]
  - Pallor [Unknown]
